FAERS Safety Report 19799980 (Version 1)
Quarter: 2021Q3

REPORT INFORMATION
  Report Type: Spontaneous
  Country: NL (occurrence: NL)
  Receive Date: 20210907
  Receipt Date: 20210907
  Transmission Date: 20211014
  Serious: Yes (Hospitalization)
  Sender: FDA-Public Use
  Company Number: NL-MYLANLABS-2021M1058284

PATIENT
  Sex: Male
  Weight: 2.9 kg

DRUGS (3)
  1. LABETALOL [Suspect]
     Active Substance: LABETALOL\LABETALOL HYDROCHLORIDE
     Indication: HYPERTENSION
     Dosage: 200 MILLIGRAM, Q8H (3TIMES DAILY 1 UNIT)
     Route: 064
  2. METHYLFENIDAAT HCL [Suspect]
     Active Substance: METHYLPHENIDATE HYDROCHLORIDE
     Indication: ATTENTION DEFICIT HYPERACTIVITY DISORDER
     Dosage: 27 MILLIGRAM, QD (1DD 1 STAUK)
     Route: 064
  3. CITALOPRAM [Suspect]
     Active Substance: CITALOPRAM HYDROBROMIDE
     Indication: ANXIETY DISORDER
     Dosage: 20 MILLIGRAM, QD (1DD 1 STUK)
     Route: 064

REACTIONS (5)
  - Foetal exposure during pregnancy [Unknown]
  - Neonatal hypoxia [Unknown]
  - Hypotonia neonatal [Recovering/Resolving]
  - Pallor [Recovering/Resolving]
  - Irritability [Unknown]
